FAERS Safety Report 16772821 (Version 1)
Quarter: 2019Q3

REPORT INFORMATION
  Report Type: Spontaneous
  Country: US (occurrence: US)
  Receive Date: 20190904
  Receipt Date: 20190904
  Transmission Date: 20191005
  Serious: Yes (Hospitalization, Other)
  Sender: FDA-Public Use
  Company Number: US-MYLANLABS-2019M1082802

PATIENT
  Age: 58 Year
  Sex: Male

DRUGS (5)
  1. ONDANSETRON [Concomitant]
     Active Substance: ONDANSETRON
     Indication: PRODUCT USED FOR UNKNOWN INDICATION
     Route: 042
  2. FLUOROURACIL. [Suspect]
     Active Substance: FLUOROURACIL
     Dosage: INFUSION PUMP SETUP WAS PLACED TO DELIVER 5495MG OF FLUOROURACIL TO BE DELIVERED IN OVER 46 HOURS...
     Route: 041
  3. LEUCOVORIN                         /00566701/ [Concomitant]
     Active Substance: LEUCOVORIN
     Indication: ADENOCARCINOMA OF COLON
     Route: 042
  4. DEXAMETHASONE. [Concomitant]
     Active Substance: DEXAMETHASONE
     Indication: PRODUCT USED FOR UNKNOWN INDICATION
     Route: 042
  5. FLUOROURACIL. [Suspect]
     Active Substance: FLUOROURACIL
     Indication: ADENOCARCINOMA OF COLON
     Dosage: 900 MILLIGRAM
     Route: 042

REACTIONS (9)
  - Clostridium difficile infection [Recovered/Resolved]
  - Thrombocytopenia [Recovered/Resolved]
  - Nystagmus [Recovered/Resolved]
  - Device issue [Recovered/Resolved]
  - Feeling abnormal [Recovered/Resolved]
  - Leukopenia [Recovered/Resolved]
  - Incorrect product administration duration [Recovered/Resolved]
  - Accidental overdose [Recovered/Resolved]
  - Hypoaesthesia [Recovered/Resolved]
